FAERS Safety Report 12980636 (Version 1)
Quarter: 2016Q4

REPORT INFORMATION
  Report Type: Spontaneous
  Country: US (occurrence: US)
  Receive Date: 20161128
  Receipt Date: 20161128
  Transmission Date: 20170207
  Serious: Yes (Other)
  Sender: FDA-Public Use
  Company Number: US-ACTELION-A-US2016-145886

PATIENT
  Age: 69 Year
  Sex: Female

DRUGS (10)
  1. VALCHLOR [Suspect]
     Active Substance: MECHLORETHAMINE
     Indication: MYCOSIS FUNGOIDES
     Dosage: UNK, QD
     Route: 061
     Dates: start: 201403
  2. TARGRETIN [Concomitant]
     Active Substance: BEXAROTENE
     Dosage: UNK
  3. IMIQUIMOD. [Concomitant]
     Active Substance: IMIQUIMOD
  4. CLOBETASOL [Concomitant]
     Active Substance: CLOBETASOL
  5. ATENOLOL. [Concomitant]
     Active Substance: ATENOLOL
  6. LOSARTAN AND HYDROCHLOROTHIAZIDE [Concomitant]
     Active Substance: HYDROCHLOROTHIAZIDE\LOSARTAN POTASSIUM
  7. TRICOR [Concomitant]
     Active Substance: FENOFIBRATE
  8. EPSOM SALT [Concomitant]
     Active Substance: MAGNESIUM SULFATE
  9. CLINDAMYCIN. [Concomitant]
     Active Substance: CLINDAMYCIN
  10. SYNTHROID [Concomitant]
     Active Substance: LEVOTHYROXINE SODIUM

REACTIONS (5)
  - Therapeutic response decreased [Unknown]
  - Mycosis fungoides stage II [Unknown]
  - Diarrhoea [Unknown]
  - Disease progression [Unknown]
  - Oedema peripheral [Not Recovered/Not Resolved]
